FAERS Safety Report 25453557 (Version 1)
Quarter: 2025Q2

REPORT INFORMATION
  Report Type: Spontaneous
  Country: ES (occurrence: ES)
  Receive Date: 20250619
  Receipt Date: 20250619
  Transmission Date: 20250716
  Serious: Yes (Other)
  Sender: PIRAMAL
  Company Number: ES-PIRAMAL CRITICAL CARE LIMITED-2025-PPL-000348

PATIENT

DRUGS (5)
  1. SEVOFLURANE [Interacting]
     Active Substance: SEVOFLURANE
     Indication: Product used for unknown indication
     Route: 042
     Dates: start: 202504, end: 202504
  2. ROCURONIUM BROMIDE [Interacting]
     Active Substance: ROCURONIUM BROMIDE
     Indication: Product used for unknown indication
     Route: 042
     Dates: start: 202504, end: 202504
  3. REMIFENTANIL [Interacting]
     Active Substance: REMIFENTANIL
     Indication: Product used for unknown indication
     Route: 042
     Dates: start: 202504, end: 202504
  4. FENTANYL [Interacting]
     Active Substance: FENTANYL
     Indication: Product used for unknown indication
     Route: 042
     Dates: start: 202504, end: 202504
  5. MAGNESIUM SULFATE HEPTAHYDRATE [Interacting]
     Active Substance: MAGNESIUM SULFATE HEPTAHYDRATE
     Indication: Product used for unknown indication
     Route: 042
     Dates: start: 202504, end: 202504

REACTIONS (3)
  - Bronchospasm [Recovered/Resolved]
  - Medication error [Recovered/Resolved]
  - Product use issue [Unknown]

NARRATIVE: CASE EVENT DATE: 20250401
